FAERS Safety Report 4907922-3 (Version None)
Quarter: 2006Q1

REPORT INFORMATION
  Report Type: 
  Country: None (occurrence: None)
  Receive Date: 20060208
  Receipt Date: 20060131
  Transmission Date: 20060701
  Serious: Yes (Hospitalization)
  Sender: FDA-Public Use
  Company Number: PHRM2006FR00669

PATIENT
  Age: 77 Year
  Sex: Male

DRUGS (6)
  1. LAMISIL [Suspect]
     Dosage: TOPICAL
     Route: 061
     Dates: start: 20051109, end: 20051123
  2. DIPROSONE [Suspect]
     Dosage: TOPICAL
     Route: 061
     Dates: start: 20051123
  3. GURONSAN         (ASCORBIC ACID, CAFFEINE, GLUCURONAMIDE) [Suspect]
     Dosage: PRN, ORAL
     Route: 048
  4. LOCOID             (HYDROCORTISONE BUTYRATE) CREAM [Suspect]
     Dosage: TOPICAL
     Route: 061
     Dates: start: 20051109, end: 20051123
  5. PREDNISOLONE [Suspect]
     Dosage: 20MG        ORAL
     Route: 048
     Dates: start: 20051201, end: 20051228
  6. ACETAMINOPHEN [Concomitant]

REACTIONS (4)
  - DERMATITIS PSORIASIFORM [None]
  - PARAKERATOSIS [None]
  - TOXIC SKIN ERUPTION [None]
  - VASCULITIS [None]
